FAERS Safety Report 7776321-1 (Version None)
Quarter: 2011Q3

REPORT INFORMATION
  Report Type: 
  Country: None (occurrence: None)
  Receive Date: 20110926
  Receipt Date: 20110915
  Transmission Date: 20111222
  Serious: Yes (Hospitalization)
  Sender: FDA-Public Use
  Company Number: US-JNJFOC-20110312776

PATIENT
  Sex: Female
  Weight: 62.4 kg

DRUGS (12)
  1. INFLIXIMAB, RECOMBINANT [Suspect]
     Route: 042
     Dates: start: 20080515
  2. ANTIBIOTICS [Concomitant]
     Indication: INFLAMMATORY BOWEL DISEASE
     Route: 065
  3. INFLIXIMAB, RECOMBINANT [Suspect]
     Indication: CROHN'S DISEASE
     Route: 042
     Dates: start: 20100209
  4. KEFLEX [Concomitant]
  5. INFLIXIMAB, RECOMBINANT [Suspect]
     Route: 042
     Dates: start: 20060517, end: 20070711
  6. NYSTATIN [Concomitant]
  7. DIFLUCAN [Concomitant]
  8. FLAGYL [Concomitant]
  9. TOBRAMYCIN [Concomitant]
  10. ZOSYN [Concomitant]
  11. HUMIRA [Concomitant]
     Dates: start: 20070921, end: 20080421
  12. ANCEF [Concomitant]

REACTIONS (1)
  - ABSCESS SOFT TISSUE [None]
